FAERS Safety Report 9431538 (Version 3)
Quarter: 2015Q1

REPORT INFORMATION
  Report Type: Report from Study
  Country: CA (occurrence: CA)
  Receive Date: 20130731
  Receipt Date: 20150212
  Transmission Date: 20150721
  Serious: Yes (Other)
  Sender: FDA-Public Use
  Company Number: CA-ROCHE-1254348

PATIENT
  Age: 56 Year
  Sex: Male
  Weight: 111.6 kg

DRUGS (17)
  1. PREDNISONE. [Concomitant]
     Active Substance: PREDNISONE
  2. LIPITOR [Concomitant]
     Active Substance: ATORVASTATIN CALCIUM
  3. NEXIUM [Concomitant]
     Active Substance: ESOMEPRAZOLE MAGNESIUM
  4. ACTEMRA [Suspect]
     Active Substance: TOCILIZUMAB
     Indication: RHEUMATOID ARTHRITIS
     Route: 042
     Dates: start: 20130417
  5. FLONASE (CANADA) [Concomitant]
  6. VICTOZA [Concomitant]
     Active Substance: LIRAGLUTIDE
  7. ACETYLSALICYLIC ACID [Concomitant]
     Active Substance: ASPIRIN
  8. EZETROL [Concomitant]
     Active Substance: EZETIMIBE
  9. ZOPICLONE [Concomitant]
     Active Substance: ZOPICLONE
  10. ATENOLOL. [Concomitant]
     Active Substance: ATENOLOL
  11. LYRICA [Concomitant]
     Active Substance: PREGABALIN
  12. SYMBICORT [Concomitant]
     Active Substance: BUDESONIDE\FORMOTEROL FUMARATE DIHYDRATE
  13. METFORMIN [Concomitant]
     Active Substance: METFORMIN HYDROCHLORIDE
  14. FLOMAX [Concomitant]
     Active Substance: TAMSULOSIN HYDROCHLORIDE
  15. METHOTREXATE [Concomitant]
     Active Substance: METHOTREXATE
  16. FENTANYL. [Concomitant]
     Active Substance: FENTANYL
  17. VENTOLIN [Concomitant]
     Active Substance: ALBUTEROL SULFATE

REACTIONS (4)
  - Spinal fracture [Unknown]
  - Osteoporosis [Unknown]
  - Thrombosis [Unknown]
  - Vertebroplasty [Unknown]

NARRATIVE: CASE EVENT DATE: 20141019
